FAERS Safety Report 6255710-0 (Version None)
Quarter: 2009Q3

REPORT INFORMATION
  Report Type: 
  Country: None (occurrence: None)
  Receive Date: 20090701
  Receipt Date: 20090623
  Transmission Date: 20100115
  Serious: Yes (Hospitalization)
  Sender: FDA-Public Use
  Company Number: 2009AL004239

PATIENT
  Age: 63 Year
  Sex: Male

DRUGS (8)
  1. IBUPROFEN TABLETS [Suspect]
     Dosage: 400 MG; TID; PO
     Route: 048
     Dates: start: 20090420, end: 20090602
  2. PREDNISOLONE [Concomitant]
  3. CP-751871 [Concomitant]
  4. OXYCONTIN [Concomitant]
  5. DIAZEPAM [Concomitant]
  6. OMEPRAZOLE [Concomitant]
  7. OXYCODONE [Concomitant]
  8. CYCLIZINE [Concomitant]

REACTIONS (9)
  - ASTHENIA [None]
  - DECREASED APPETITE [None]
  - DEHYDRATION [None]
  - FATIGUE [None]
  - FLUID INTAKE REDUCED [None]
  - HYPOPHAGIA [None]
  - MUCOSAL DRYNESS [None]
  - PALLOR [None]
  - RENAL IMPAIRMENT [None]
